FAERS Safety Report 4323193-3 (Version None)
Quarter: 2004Q1

REPORT INFORMATION
  Report Type: 
  Country: None (occurrence: None)
  Receive Date: 20040322
  Receipt Date: 20040309
  Transmission Date: 20041129
  Serious: Yes (Hospitalization)
  Sender: FDA-Public Use
  Company Number: MK200403-0090-1

PATIENT
  Age: 79 Year
  Sex: Female

DRUGS (12)
  1. TEMAZEPAM 15MG CAPSULES [Suspect]
     Dosage: 15MG
     Dates: start: 20020201, end: 20040225
  2. DURAGESIC [Suspect]
     Indication: PAIN
     Dosage: 75UG/HR
     Dates: start: 20040201, end: 20040225
  3. SERTRALINE HCL [Concomitant]
  4. POTASSIUM [Concomitant]
  5. DIGOXIN [Concomitant]
  6. ASPIRIN [Concomitant]
  7. METOPROLOL [Concomitant]
  8. FUROSEMIDE [Concomitant]
  9. LISINOPRIL [Concomitant]
  10. NICOTINIC ACID [Concomitant]
  11. OMEPRAZOLE [Concomitant]
  12. WARFARIN SODIUM [Concomitant]

REACTIONS (6)
  - DIARRHOEA [None]
  - DIZZINESS [None]
  - DRUG INTERACTION [None]
  - EYE DISORDER [None]
  - MEMORY IMPAIRMENT [None]
  - NAUSEA [None]
